FAERS Safety Report 7356690 (Version 2)
Quarter: 2019Q2

REPORT INFORMATION
  Report Type: Spontaneous
  Country: FR (occurrence: FR)
  Receive Date: 20100330
  Receipt Date: 20190606
  Transmission Date: 20190711
  Serious: Yes (Hospitalization)
  Sender: FDA-Public Use
  Company Number: 6057149

PATIENT
  Age: 89 Year
  Sex: Female

DRUGS (9)
  1. EUTHYROX [Suspect]
     Active Substance: LEVOTHYROXINE SODIUM
     Indication: HYPOTHYROIDISM
     Route: 048
  2. PREVISCAN (FLUINDIONE) [Suspect]
     Active Substance: FLUINDIONE
     Route: 048
     Dates: end: 20091008
  3. BROMAZEPAM [Concomitant]
     Active Substance: BROMAZEPAM
  4. MIANSERIN [Concomitant]
     Active Substance: MIANSERIN
  5. PROZAC [Suspect]
     Active Substance: FLUOXETINE HYDROCHLORIDE
     Route: 048
  6. MODOPAR(MADOPAR) [Concomitant]
  7. COVERSYL [Concomitant]
     Active Substance: PERINDOPRIL
  8. FORLAX [Concomitant]
     Active Substance: POLYETHYLENE GLYCOL 4000
  9. OSTRAM [Concomitant]
     Active Substance: CALCIUM PHOSPHATE

REACTIONS (2)
  - Drug interaction [Recovered/Resolved]
  - Abdominal wall haematoma [Recovered/Resolved]

NARRATIVE: CASE EVENT DATE: 20091009
